FAERS Safety Report 8173098-5 (Version None)
Quarter: 2012Q1

REPORT INFORMATION
  Report Type: 
  Country: None (occurrence: None)
  Receive Date: 20120229
  Receipt Date: 20120217
  Transmission Date: 20120608
  Serious: Yes (Other)
  Sender: FDA-Public Use
  Company Number: US-JNJFOC-20111201371

PATIENT
  Sex: Female
  Weight: 63.96 kg

DRUGS (2)
  1. REMICADE [Suspect]
     Indication: RHEUMATOID ARTHRITIS
     Route: 042
     Dates: start: 20100101
  2. TYLENOL W/ CODEINE NO. 4 [Concomitant]
     Indication: ARTHRALGIA
     Dosage: COUPLE TIMES A DAY
     Route: 048
     Dates: start: 20110101

REACTIONS (6)
  - INFLUENZA [None]
  - EMPHYSEMA [None]
  - INFUSION RELATED REACTION [None]
  - COUGH [None]
  - ARTHRALGIA [None]
  - PNEUMONIA [None]
